FAERS Safety Report 5507329-4 (Version None)
Quarter: 2007Q4

REPORT INFORMATION
  Report Type: 
  Country: None (occurrence: None)
  Receive Date: 20071102
  Receipt Date: 20071019
  Transmission Date: 20080405
  Serious: Yes (Hospitalization)
  Sender: FDA-Public Use
  Company Number: 163072ISR

PATIENT
  Age: 40 Year
  Sex: Male

DRUGS (1)
  1. DICLOFENAC SODIUM [Suspect]
     Indication: PERINEAL PAIN
     Dosage: 150 MG (50 MG,3 IN 1 D),ORAL
     Route: 048

REACTIONS (7)
  - ADHESION [None]
  - BENIGN SMALL INTESTINAL NEOPLASM [None]
  - ILEAL STENOSIS [None]
  - ILEAL ULCER [None]
  - INTESTINAL PERFORATION [None]
  - INTESTINAL POLYP [None]
  - SMALL INTESTINAL OBSTRUCTION [None]
